FAERS Safety Report 17675391 (Version 1)
Quarter: 2020Q2

REPORT INFORMATION
  Report Type: Spontaneous
  Country: US (occurrence: US)
  Receive Date: 20200416
  Receipt Date: 20200416
  Transmission Date: 20200714
  Serious: Yes (Other)
  Sender: FDA-Public Use
  Company Number: US-SUPERNUS PHARMACEUTICALS, INC.-2020SUP00066

PATIENT
  Age: 32 Year
  Sex: Female

DRUGS (2)
  1. OXTELLAR XR [Suspect]
     Active Substance: OXCARBAZEPINE
     Dosage: 300 MG
  2. OXTELLAR XR [Suspect]
     Active Substance: OXCARBAZEPINE
     Dosage: 600 MG

REACTIONS (2)
  - Multiple sclerosis relapse [Unknown]
  - Muscle spasms [Unknown]

NARRATIVE: CASE EVENT DATE: 202001
